FAERS Safety Report 12308614 (Version 7)
Quarter: 2016Q4

REPORT INFORMATION
  Report Type: Spontaneous
  Country: US (occurrence: US)
  Receive Date: 20160427
  Receipt Date: 20161220
  Transmission Date: 20170207
  Serious: Yes (Hospitalization, Disabling, Other)
  Sender: FDA-Public Use
  Company Number: US-009507513-1604USA013069

PATIENT
  Age: 79 Year
  Sex: Female
  Weight: 58.95 kg

DRUGS (6)
  1. ASPIRIN. [Concomitant]
     Active Substance: ASPIRIN
  2. KEYTRUDA [Suspect]
     Active Substance: PEMBROLIZUMAB
     Indication: MALIGNANT MELANOMA
     Dosage: UNK, 3 TREATMENTS EVERY 3 WEEKS
     Route: 042
     Dates: start: 20160125, end: 20160307
  3. METOPROLOL. [Concomitant]
     Active Substance: METOPROLOL
  4. AMLODIPINE [Concomitant]
     Active Substance: AMLODIPINE BESYLATE
  5. LEVOTHYROXINE SODIUM. [Concomitant]
     Active Substance: LEVOTHYROXINE SODIUM
  6. VITAMINS (UNSPECIFIED) [Concomitant]
     Active Substance: VITAMINS

REACTIONS (22)
  - Choroiditis [Recovering/Resolving]
  - Cataract [Unknown]
  - Balance disorder [Not Recovered/Not Resolved]
  - Blister [Not Recovered/Not Resolved]
  - Oesophageal candidiasis [Unknown]
  - Rash [Recovering/Resolving]
  - Rash [Not Recovered/Not Resolved]
  - Scar [Not Recovered/Not Resolved]
  - Basal ganglia infarction [Recovered/Resolved with Sequelae]
  - Autoimmune uveitis [Recovering/Resolving]
  - Deafness [Recovered/Resolved]
  - Hepatic neoplasm [Not Recovered/Not Resolved]
  - Blister [Unknown]
  - Retinal detachment [Recovered/Resolved]
  - Blood potassium decreased [Unknown]
  - Ataxia [Recovering/Resolving]
  - Blindness [Not Recovered/Not Resolved]
  - Ischaemic stroke [Recovering/Resolving]
  - Gait disturbance [Not Recovered/Not Resolved]
  - Eye disorder [Unknown]
  - Neoplasm progression [Not Recovered/Not Resolved]
  - Iris disorder [Recovering/Resolving]

NARRATIVE: CASE EVENT DATE: 2016
